FAERS Safety Report 6761369-6 (Version None)
Quarter: 2010Q2

REPORT INFORMATION
  Report Type: 
  Country: None (occurrence: None)
  Receive Date: 20100607
  Receipt Date: 20100531
  Transmission Date: 20101027
  Serious: Yes (Death)
  Sender: FDA-Public Use
  Company Number: 2010JP002478

PATIENT
  Age: 81 Year
  Sex: Female

DRUGS (5)
  1. PROGRAF [Suspect]
     Indication: RHEUMATOID ARTHRITIS
     Dosage: 1 MG, UID/QD, ORAL
     Route: 048
     Dates: start: 20100416, end: 20100418
  2. PREDNISONE [Concomitant]
  3. METHOTREXATE [Concomitant]
  4. CELECOX (CELECOXIB) TABLET [Concomitant]
  5. MUCOSTA (REBAMIPIDE) TABLET [Concomitant]

REACTIONS (7)
  - DISCOMFORT [None]
  - FIBRIN DEGRADATION PRODUCTS INCREASED [None]
  - HYPOTENSION [None]
  - LIVER DISORDER [None]
  - MULTI-ORGAN FAILURE [None]
  - RENAL FAILURE [None]
  - RESPIRATORY FAILURE [None]
